FAERS Safety Report 18813103 (Version 1)
Quarter: 2021Q1

REPORT INFORMATION
  Report Type: Spontaneous
  Country: US (occurrence: US)
  Receive Date: 20210131
  Receipt Date: 20210131
  Transmission Date: 20210419
  Serious: Yes (Other)
  Sender: FDA-Public Use
  Company Number: US-PURDUE-USA-2012-0087311

PATIENT
  Age: 60 Year
  Sex: Male

DRUGS (4)
  1. GERITOL                            /00543501/ [Concomitant]
     Indication: PRODUCT USED FOR UNKNOWN INDICATION
  2. SLOW?MAG [Suspect]
     Active Substance: MAGNESIUM CHLORIDE
     Indication: MINERAL SUPPLEMENTATION
     Dosage: 1 TABLET, DAILY
     Route: 048
     Dates: start: 201201
  3. SLOW?MAG [Suspect]
     Active Substance: MAGNESIUM CHLORIDE
     Indication: MINERAL SUPPLEMENTATION
  4. VITAMIN E                          /00110501/ [Concomitant]
     Active Substance: TOCOPHEROL
     Indication: PRODUCT USED FOR UNKNOWN INDICATION

REACTIONS (6)
  - Product odour abnormal [Recovered/Resolved]
  - Rectal haemorrhage [Recovered/Resolved]
  - Diverticulitis [Unknown]
  - Nausea [Recovered/Resolved]
  - Gastric ulcer [Unknown]
  - Abdominal pain upper [Recovered/Resolved]

NARRATIVE: CASE EVENT DATE: 201201
